FAERS Safety Report 8479946-3 (Version None)
Quarter: 2012Q2

REPORT INFORMATION
  Report Type: 
  Country: None (occurrence: None)
  Receive Date: 20120615
  Receipt Date: 20120608
  Transmission Date: 20120825
  Serious: Yes (Death)
  Sender: FDA-Public Use
  Company Number: DSA_57827_2012

PATIENT
  Age: 44 Year
  Sex: Female

DRUGS (1)
  1. XENAZINE [Suspect]
     Indication: PRODUCT USED FOR UNKNOWN INDICATION
     Dosage: (37.5 MG BID, 25 MG AND 12.5 MG TABLET ORAL)
     Route: 048
     Dates: start: 20110307, end: 20120427

REACTIONS (1)
  - DEATH [None]
